FAERS Safety Report 5194750-X (Version None)
Quarter: 2006Q4

REPORT INFORMATION
  Report Type: 
  Country: None (occurrence: None)
  Receive Date: 20061229
  Receipt Date: 20061219
  Transmission Date: 20070319
  Serious: Yes (Hospitalization)
  Sender: FDA-Public Use
  Company Number: 2006UW28205

PATIENT
  Age: 80 Year
  Sex: Female

DRUGS (3)
  1. LIDOCAINE [Suspect]
     Indication: NERVE BLOCK
     Dates: start: 20060817
  2. CELESTONE SOLUSPAN [Suspect]
     Indication: NERVE BLOCK
     Dates: start: 20060817
  3. LORAZEPAM [Suspect]
     Route: 048

REACTIONS (3)
  - DIPLEGIA [None]
  - HYPOAESTHESIA [None]
  - PARALYSIS FLACCID [None]
